FAERS Safety Report 16363089 (Version 1)
Quarter: 2019Q2

REPORT INFORMATION
  Report Type: Spontaneous
  Country: JP (occurrence: JP)
  Receive Date: 20190528
  Receipt Date: 20190528
  Transmission Date: 20190711
  Serious: Yes (Death, Other)
  Sender: FDA-Public Use
  Company Number: JP-JNJFOC-20181203637

PATIENT
  Age: 83 Year
  Sex: Female

DRUGS (8)
  1. ZANTAC [Concomitant]
     Active Substance: RANITIDINE HYDROCHLORIDE
     Route: 048
  2. MAGNESIUM OXIDE. [Concomitant]
     Active Substance: MAGNESIUM OXIDE
     Route: 048
  3. SENNOSIDE [Concomitant]
     Active Substance: SENNOSIDES
     Route: 048
  4. TERIBONE [Suspect]
     Active Substance: TERIPARATIDE ACETATE
     Indication: OSTEOPOROSIS
     Route: 058
     Dates: start: 20181023, end: 20181129
  5. TRAMADOL HYDROCHLORIDE AND ACETAMINOPHEN [Suspect]
     Active Substance: ACETAMINOPHEN\TRAMADOL HYDROCHLORIDE
     Indication: PAIN
     Route: 048
     Dates: start: 20181013, end: 20181129
  6. RANITIDINE. [Concomitant]
     Active Substance: RANITIDINE
     Route: 048
  7. CLEAMINE A [Concomitant]
     Active Substance: CAFFEINE\ERGOTAMINE TARTRATE\PROPYPHENAZONE
     Route: 048
  8. LYRICA [Suspect]
     Active Substance: PREGABALIN
     Indication: BACK PAIN
     Route: 048
     Dates: start: 20181013, end: 20181129

REACTIONS (2)
  - Drug-induced liver injury [Recovering/Resolving]
  - Death [Fatal]

NARRATIVE: CASE EVENT DATE: 20181113
